FAERS Safety Report 15313037 (Version 1)
Quarter: 2018Q3

REPORT INFORMATION
  Report Type: Spontaneous
  Country: US (occurrence: US)
  Receive Date: 20180823
  Receipt Date: 20180823
  Transmission Date: 20181010
  Serious: No
  Sender: FDA-Public Use
  Company Number: US-TEVA-2018-US-945173

PATIENT
  Sex: Female

DRUGS (2)
  1. FOSINOPRIL [Suspect]
     Active Substance: FOSINOPRIL
     Dosage: 20 MILLIGRAM DAILY;
     Route: 065
  2. FOSINOPRIL [Suspect]
     Active Substance: FOSINOPRIL
     Dosage: 20 MILLIGRAM DAILY;
     Route: 065

REACTIONS (2)
  - Product physical issue [Unknown]
  - Feeling abnormal [Unknown]
